FAERS Safety Report 7604122-3 (Version None)
Quarter: 2011Q3

REPORT INFORMATION
  Report Type: 
  Country: None (occurrence: None)
  Receive Date: 20110712
  Receipt Date: 20110707
  Transmission Date: 20111222
  Serious: Yes (Other)
  Sender: FDA-Public Use
  Company Number: JP-PFIZER INC-2011150559

PATIENT
  Age: 87 Year
  Sex: Male

DRUGS (2)
  1. WARFARIN [Concomitant]
     Route: 048
  2. EPLERENONE [Suspect]
     Dosage: 50 MG DAILY
     Route: 048
     Dates: start: 20110201

REACTIONS (2)
  - PLATELET COUNT DECREASED [None]
  - GRANULOCYTE COUNT DECREASED [None]
